FAERS Safety Report 7583976-3 (Version None)
Quarter: 2011Q2

REPORT INFORMATION
  Report Type: 
  Country: None (occurrence: None)
  Receive Date: 20110531
  Receipt Date: 20110126
  Transmission Date: 20111010
  Serious: Yes (Other)
  Sender: FDA-Public Use
  Company Number: 318004

PATIENT
  Sex: Female

DRUGS (4)
  1. VAGIFEM [Suspect]
     Indication: PRODUCT USED FOR UNKNOWN INDICATION
     Dosage: VAGINAL
     Route: 067
  2. VAGIFEM [Suspect]
     Dosage: VAGINAL
     Route: 067
  3. VAGIFEM [Suspect]
     Dosage: VAGINAL
     Route: 067
  4. VAGIFEM [Suspect]
     Dosage: VAGINAL
     Route: 067

REACTIONS (1)
  - BREAST CANCER [None]
